FAERS Safety Report 8785789 (Version 5)
Quarter: 2014Q3

REPORT INFORMATION
  Report Type: Spontaneous
  Country: JP (occurrence: JP)
  Receive Date: 20120914
  Receipt Date: 20140716
  Transmission Date: 20150326
  Serious: Yes (Life-Threatening, Hospitalization)
  Sender: FDA-Public Use
  Company Number: JP-GLAXOSMITHKLINE-B0826789A

PATIENT
  Age: 64 Year
  Sex: Female
  Weight: 35 kg

DRUGS (12)
  1. JZOLOFT [Concomitant]
     Active Substance: SERTRALINE HYDROCHLORIDE
     Indication: DEPRESSION
     Dosage: 100MG PER DAY
     Route: 048
     Dates: start: 20111208, end: 20120820
  2. METLIGINE [Concomitant]
     Active Substance: MIDODRINE HYDROCHLORIDE
     Indication: ORTHOSTATIC HYPOTENSION
     Dosage: 2MG TWICE PER DAY
     Route: 048
     Dates: start: 20111208
  3. MEILAX [Concomitant]
     Active Substance: ETHYL LOFLAZEPATE
     Indication: ANXIETY
     Dosage: 1MG PER DAY
     Route: 048
     Dates: start: 20111208, end: 20120806
  4. PURSENNID [Concomitant]
     Active Substance: SENNOSIDES A AND B CALCIUM
     Indication: CONSTIPATION
     Dosage: 24MG PER DAY
     Route: 048
     Dates: start: 20111215
  5. URALYT [Concomitant]
     Active Substance: POTASSIUM CITRATE\TRISODIUM CITRATE DIHYDRATE
     Dosage: 3IUAX THREE TIMES PER DAY
     Route: 048
  6. LAMICTAL [Suspect]
     Active Substance: LAMOTRIGINE
     Indication: BIPOLAR II DISORDER
     Dosage: 50MG PER DAY
     Route: 048
     Dates: start: 20120612, end: 20120625
  7. ZYPREXA [Concomitant]
     Active Substance: OLANZAPINE
     Indication: BIPOLAR II DISORDER
     Dosage: 5MG PER DAY
     Route: 048
     Dates: start: 20120302
  8. LAMICTAL [Suspect]
     Active Substance: LAMOTRIGINE
     Indication: BIPOLAR II DISORDER
     Dosage: 100MG TWICE PER DAY
     Route: 048
     Dates: start: 20120710, end: 20120716
  9. TEGRETOL [Suspect]
     Active Substance: CARBAMAZEPINE
     Indication: BIPOLAR II DISORDER
     Dosage: 100MG PER DAY
     Route: 048
     Dates: start: 20120713, end: 20120716
  10. LAMICTAL [Suspect]
     Active Substance: LAMOTRIGINE
     Indication: BIPOLAR II DISORDER
     Dosage: 50MG TWICE PER DAY
     Route: 048
     Dates: start: 20120626, end: 20120709
  11. TEGRETOL [Suspect]
     Active Substance: CARBAMAZEPINE
     Indication: BIPOLAR II DISORDER
     Route: 048
     Dates: start: 20120626, end: 20120712
  12. TEGRETOL [Suspect]
     Active Substance: CARBAMAZEPINE
     Indication: BIPOLAR II DISORDER
     Dosage: 100MG THREE TIMES PER DAY
     Route: 048
     Dates: start: 20111208, end: 20120625

REACTIONS (9)
  - Stomatitis [Recovered/Resolved]
  - Drug eruption [Recovered/Resolved]
  - Rash [Unknown]
  - Toxic epidermal necrolysis [Unknown]
  - Mouth haemorrhage [Recovered/Resolved]
  - Oculomucocutaneous syndrome [Recovering/Resolving]
  - Erythema [Recovered/Resolved]
  - Mucosal erosion [Recovered/Resolved]
  - Stevens-Johnson syndrome [Recovering/Resolving]

NARRATIVE: CASE EVENT DATE: 20120713
